FAERS Safety Report 6176904-9 (Version None)
Quarter: 2009Q2

REPORT INFORMATION
  Report Type: 
  Country: None (occurrence: None)
  Receive Date: 20090501
  Receipt Date: 20081209
  Transmission Date: 20091009
  Serious: Yes (Hospitalization, Other)
  Sender: FDA-Public Use
  Company Number: US-ALEXION-A200800272

PATIENT
  Sex: Female
  Weight: 46.939 kg

DRUGS (7)
  1. SOLIRIS [Suspect]
     Indication: PAROXYSMAL NOCTURNAL HAEMOGLOBINURIA
     Dosage: 600 MG, QW
     Route: 042
  2. SOLIRIS [Suspect]
     Dosage: 900 MG, Q2WKS
     Route: 042
     Dates: start: 20081028, end: 20081111
  3. SOLIRIS [Suspect]
     Dosage: 900 MG, Q10D
     Route: 042
     Dates: start: 20081111, end: 20081121
  4. SOLIRIS [Suspect]
     Dosage: 900 MG, Q12D
     Route: 042
     Dates: start: 20081121
  5. ARIXTRA [Concomitant]
     Indication: PULMONARY EMBOLISM
     Dosage: 10 MG, QD
  6. HYDROQUINONE [Concomitant]
  7. XANAX [Concomitant]

REACTIONS (7)
  - ARTHRALGIA [None]
  - CONTUSION [None]
  - HAEMOGLOBIN DECREASED [None]
  - HAEMOLYSIS [None]
  - HORDEOLUM [None]
  - MUSCLE SPASMS [None]
  - PANCREATITIS ACUTE [None]
